FAERS Safety Report 25750642 (Version 2)
Quarter: 2025Q3

REPORT INFORMATION
  Report Type: Spontaneous
  Country: EU (occurrence: EU)
  Receive Date: 20250902
  Receipt Date: 20250917
  Transmission Date: 20251020
  Serious: Yes (Disabling)
  Sender: MYLAN
  Company Number: EU-TOWA-202503796

PATIENT
  Age: 80 Year
  Sex: Female

DRUGS (9)
  1. PANTOPRAZOLE SODIUM [Concomitant]
     Active Substance: PANTOPRAZOLE SODIUM
     Indication: Dyspepsia
     Dosage: 1 DOSAGE FORM, QD, 1-0-0
     Dates: start: 2021
  2. SIMVASTATIN [Suspect]
     Active Substance: SIMVASTATIN
     Indication: Cardiovascular event prophylaxis
     Dosage: 1 DOSAGE FORM, QD, 0-0-1
     Dates: start: 2021
  3. LOSARTAN [Concomitant]
     Active Substance: LOSARTAN
     Indication: Hypertension
     Dosage: 1 DOSAGE FORM, QD, 1-0-0
     Dates: start: 2015
  4. BISOPROLOL [Concomitant]
     Active Substance: BISOPROLOL
     Indication: Cardiac failure
     Dosage: 1 DOSAGE FORM, QD, 1-0-0
     Dates: start: 2021
  5. CLOPIDOGREL [Concomitant]
     Active Substance: CLOPIDOGREL BISULFATE
     Indication: Angina pectoris
     Dosage: 1 DOSAGE FORM, QD, 1-0-0
     Dates: start: 2021
  6. CLOPIDOGREL [Concomitant]
     Active Substance: CLOPIDOGREL BISULFATE
     Indication: Cardiac failure
  7. AMLODIPINE BESYLATE [Concomitant]
     Active Substance: AMLODIPINE BESYLATE
     Indication: Angina pectoris
     Dosage: 1 DOSAGE FORM, QD, 1-0-0
     Dates: start: 2021
  8. EZETIMIBE [Concomitant]
     Active Substance: EZETIMIBE
     Indication: Cardiovascular event prophylaxis
     Dosage: 1 DOSAGE FORM, QD, 0-0-1
     Dates: start: 2021
  9. CHOLECALCIFEROL [Concomitant]
     Active Substance: CHOLECALCIFEROL
     Indication: Vitamin D deficiency

REACTIONS (3)
  - Muscle spasms [Recovered/Resolved]
  - Myalgia [Recovered/Resolved]
  - Off label use [Unknown]
